FAERS Safety Report 8125673-1 (Version None)
Quarter: 2012Q1

REPORT INFORMATION
  Report Type: 
  Country: None (occurrence: None)
  Receive Date: 20120209
  Receipt Date: 20120203
  Transmission Date: 20120608
  Serious: Yes (Other)
  Sender: FDA-Public Use
  Company Number: US-PFIZER INC-2012012297

PATIENT
  Sex: Female
  Weight: 10.431 kg

DRUGS (2)
  1. GENOTROPIN [Suspect]
     Indication: GROWTH HORMONE DEFICIENCY
     Dosage: 0.4 MG, 1X/DAY
     Route: 058
     Dates: start: 20111101, end: 20111114
  2. GENOTROPIN [Suspect]
     Dosage: 0.2 MG, 1X/DAY
     Route: 058
     Dates: start: 20111121, end: 20111213

REACTIONS (11)
  - COUGH [None]
  - VOMITING [None]
  - EYE PRURITUS [None]
  - CONVULSION [None]
  - HEADACHE [None]
  - ABASIA [None]
  - GAIT DISTURBANCE [None]
  - CONDITION AGGRAVATED [None]
  - RESPIRATORY TRACT CONGESTION [None]
  - EYE PAIN [None]
  - TREMOR [None]
